FAERS Safety Report 12461642 (Version 1)
Quarter: 2016Q2

REPORT INFORMATION
  Report Type: Spontaneous
  Country: IT (occurrence: IT)
  Receive Date: 20160613
  Receipt Date: 20160613
  Transmission Date: 20160815
  Serious: Yes (Hospitalization, Other)
  Sender: FDA-Public Use
  Company Number: IT-BRISTOL-MYERS SQUIBB COMPANY-BMS-2016-044721

PATIENT
  Age: 67 Year
  Sex: Female

DRUGS (6)
  1. BIPERIDEN HYDROCHLORIDE [Concomitant]
     Active Substance: BIPERIDEN HYDROCHLORIDE
     Indication: PRODUCT USED FOR UNKNOWN INDICATION
     Dosage: UNK
     Route: 048
     Dates: start: 20080104, end: 20160524
  2. COUMADIN [Suspect]
     Active Substance: WARFARIN SODIUM
     Indication: VENOUS THROMBOSIS
     Dosage: 5 MG, QD
     Route: 048
     Dates: start: 20160104
  3. LORAZEPAM. [Concomitant]
     Active Substance: LORAZEPAM
     Indication: ANXIETY
     Dosage: UNK
     Route: 048
     Dates: start: 20080104, end: 20160524
  4. HALDOL DECANOATE [Concomitant]
     Active Substance: HALOPERIDOL DECANOATE
     Indication: PSYCHOTIC DISORDER
     Dosage: 50 MG/ML, UNK
     Route: 030
     Dates: start: 20080104, end: 20160524
  5. KARVEA [Concomitant]
     Active Substance: IRBESARTAN
     Indication: HYPERTENSION
     Dosage: 150 MG, UNK
     Route: 048
     Dates: start: 20080104, end: 20160524
  6. FERRO-GRAD [Concomitant]
     Active Substance: FERROUS SULFATE
     Indication: ANAEMIA
     Dosage: 105 MG, UNK
     Route: 048
     Dates: start: 20080104, end: 20160524

REACTIONS (2)
  - Anaemia [Unknown]
  - Transfusion [Unknown]

NARRATIVE: CASE EVENT DATE: 20160524
